FAERS Safety Report 10485706 (Version 5)
Quarter: 2021Q4

REPORT INFORMATION
  Report Type: Spontaneous
  Country: FR (occurrence: FR)
  Receive Date: 20141001
  Receipt Date: 20211007
  Transmission Date: 20220303
  Serious: Yes (Other)
  Sender: FDA-Public Use
  Company Number: FR-BEH-2014045206

PATIENT
  Age: 53 Year
  Sex: Female
  Weight: 170 kg

DRUGS (12)
  1. PRIVIGEN [Suspect]
     Active Substance: HUMAN IMMUNOGLOBULIN G
     Indication: Guillain-Barre syndrome
     Dosage: 25 MG IN TOTAL
     Route: 042
     Dates: start: 20140906, end: 20140906
  2. PRIVIGEN [Suspect]
     Active Substance: HUMAN IMMUNOGLOBULIN G
     Dosage: 25 MG IN TOTAL
     Route: 042
     Dates: start: 20140906, end: 20140906
  3. PRIVIGEN [Suspect]
     Active Substance: HUMAN IMMUNOGLOBULIN G
     Dosage: 25 MG IN TOTAL
     Route: 042
     Dates: start: 20140907, end: 20140907
  4. PRIVIGEN [Suspect]
     Active Substance: HUMAN IMMUNOGLOBULIN G
     Dosage: 25 MG IN TOTAL
     Route: 042
     Dates: start: 20140907, end: 20140907
  5. PRIVIGEN [Suspect]
     Active Substance: HUMAN IMMUNOGLOBULIN G
     Dosage: 25 MG IN TOTAL
     Route: 042
     Dates: start: 20140908, end: 20140908
  6. PRIVIGEN [Suspect]
     Active Substance: HUMAN IMMUNOGLOBULIN G
     Dosage: 25 MG IN TOTAL
     Route: 042
     Dates: start: 20140908, end: 20140908
  7. PRIVIGEN [Suspect]
     Active Substance: HUMAN IMMUNOGLOBULIN G
     Dosage: 25 MG IN TOTAL
     Route: 042
     Dates: start: 20140909, end: 20140909
  8. PRIVIGEN [Suspect]
     Active Substance: HUMAN IMMUNOGLOBULIN G
     Dosage: 25 MG IN TOTAL
     Route: 042
     Dates: start: 20140909, end: 20140909
  9. PRIVIGEN [Suspect]
     Active Substance: HUMAN IMMUNOGLOBULIN G
     Dosage: 10 MILLIGRAM
     Route: 042
     Dates: start: 20140910
  10. PRIVIGEN [Suspect]
     Active Substance: HUMAN IMMUNOGLOBULIN G
     Dosage: 25 MG IN TOTAL, QD
     Route: 042
     Dates: start: 20140906, end: 20140910
  11. ESOMEPRAZOLE MAGNESIUM [Concomitant]
     Active Substance: ESOMEPRAZOLE MAGNESIUM
     Dosage: 20 MILLIGRAM
     Dates: start: 20140910
  12. LOVENOX [Concomitant]
     Active Substance: ENOXAPARIN SODIUM
     Dosage: 1 DOSAGE FORM
     Route: 058
     Dates: start: 20140906, end: 20140909

REACTIONS (5)
  - Neutropenia [Not Recovered/Not Resolved]
  - Platelet count decreased [Recovered/Resolved]
  - Haemoglobin decreased [Recovered/Resolved]
  - Leukopenia [Unknown]
  - Viral infection [Unknown]

NARRATIVE: CASE EVENT DATE: 20140910
